FAERS Safety Report 17220078 (Version 1)
Quarter: 2019Q4

REPORT INFORMATION
  Report Type: Report from Study
  Country: US (occurrence: US)
  Receive Date: 20191231
  Receipt Date: 20191231
  Transmission Date: 20200122
  Serious: Yes (Other)
  Sender: FDA-Public Use
  Company Number: US-PFIZER INC-2019174275

PATIENT
  Age: 61 Year
  Sex: Female

DRUGS (1)
  1. XELJANZ XR [Suspect]
     Active Substance: TOFACITINIB CITRATE
     Indication: RHEUMATOID ARTHRITIS
     Dosage: 11 MG, DAILY
     Route: 048
     Dates: start: 20190226, end: 201911

REACTIONS (13)
  - Parathyroid tumour [Unknown]
  - Red blood cell sedimentation rate decreased [Not Recovered/Not Resolved]
  - Urinary tract infection [Unknown]
  - Blood cholesterol increased [Not Recovered/Not Resolved]
  - Respiratory disorder [Recovered/Resolved]
  - Blood calcium increased [Unknown]
  - Malaise [Unknown]
  - Liver function test abnormal [Unknown]
  - Upper-airway cough syndrome [Unknown]
  - Thyroid neoplasm [Unknown]
  - Weight increased [Not Recovered/Not Resolved]
  - Cough [Not Recovered/Not Resolved]
  - Increased appetite [Not Recovered/Not Resolved]

NARRATIVE: CASE EVENT DATE: 2019
